FAERS Safety Report 4657325-4 (Version None)
Quarter: 2005Q2

REPORT INFORMATION
  Report Type: 
  Country: None (occurrence: None)
  Receive Date: 20050408
  Receipt Date: 20041207
  Transmission Date: 20051028
  Serious: No
  Sender: FDA-Public Use
  Company Number: 235977K04USA

PATIENT
  Age: 41 Year
  Sex: Male

DRUGS (1)
  1. REBIF [Suspect]
     Indication: MULTIPLE SCLEROSIS
     Dosage: 44 MCG, 2 IN 1 WEEKS,, SUBCUTANEOUS
     Route: 058
     Dates: start: 20040823

REACTIONS (2)
  - PULMONARY CONGESTION [None]
  - RHINORRHOEA [None]
